FAERS Safety Report 13225598 (Version 1)
Quarter: 2017Q1

REPORT INFORMATION
  Report Type: Spontaneous
  Country: GB (occurrence: US)
  Receive Date: 20170211
  Receipt Date: 20170211
  Transmission Date: 20170428
  Serious: Yes (Hospitalization)
  Sender: FDA-Public Use
  Company Number: None

PATIENT
  Age: 69 Year
  Sex: Female
  Weight: 59.89 kg

DRUGS (1)
  1. TAXOL [Suspect]
     Active Substance: PACLITAXEL
     Dates: end: 20170112

REACTIONS (3)
  - Large intestinal obstruction [None]
  - Mesenteric fibrosis [None]
  - Hypophagia [None]

NARRATIVE: CASE EVENT DATE: 20170123
